FAERS Safety Report 9498439 (Version 3)
Quarter: 2013Q4

REPORT INFORMATION
  Report Type: Report from Study
  Country: JP (occurrence: JP)
  Receive Date: 20130904
  Receipt Date: 20131029
  Transmission Date: 20140711
  Serious: Yes (Death)
  Sender: FDA-Public Use
  Company Number: JP-GLAXOSMITHKLINE-B0918474A

PATIENT
  Age: 20 Year
  Sex: Male
  Weight: 70 kg

DRUGS (11)
  1. VOTRIENT 200MG [Suspect]
     Indication: UNDIFFERENTIATED SARCOMA
     Dosage: 800MG PER DAY
     Route: 048
     Dates: start: 20130415, end: 20130507
  2. VOTRIENT 200MG [Suspect]
     Indication: UNDIFFERENTIATED SARCOMA
     Dosage: 800MG PER DAY
     Route: 048
     Dates: start: 20130515, end: 20130604
  3. VOTRIENT 200MG [Suspect]
     Indication: UNDIFFERENTIATED SARCOMA
     Dosage: 600MG PER DAY
     Route: 048
     Dates: start: 20130612, end: 20130819
  4. HYPEN [Concomitant]
     Indication: CANCER PAIN
     Dosage: 200MG TWICE PER DAY
     Route: 048
     Dates: start: 20130812
  5. OXYCONTIN [Concomitant]
     Indication: CANCER PAIN
     Dosage: 5MG TWICE PER DAY
     Route: 048
     Dates: start: 20121003
  6. CHINESE MEDICINE [Concomitant]
     Indication: STOMATITIS
     Dosage: 2.5G THREE TIMES PER DAY
     Route: 048
     Dates: start: 201304
  7. CHINESE MEDICINE [Concomitant]
     Indication: ILEUS
     Dosage: 2.5G THREE TIMES PER DAY
     Route: 048
     Dates: start: 201304
  8. MUCOSTA [Concomitant]
     Dosage: 100MG THREE TIMES PER DAY
     Route: 048
     Dates: start: 201304
  9. LOPEMIN [Concomitant]
     Indication: DIARRHOEA
     Dosage: 1MG TWICE PER DAY
     Route: 048
     Dates: start: 201305
  10. TOUGHMAC E [Concomitant]
     Indication: DIARRHOEA
     Route: 048
     Dates: start: 201307
  11. DEXAMETHASONE [Concomitant]
     Indication: PROPHYLAXIS
     Route: 065

REACTIONS (16)
  - Gastrointestinal haemorrhage [Fatal]
  - Duodenal ulcer [Fatal]
  - White blood cell count decreased [Not Recovered/Not Resolved]
  - Platelet count decreased [Not Recovered/Not Resolved]
  - Palmar-plantar erythrodysaesthesia syndrome [Not Recovered/Not Resolved]
  - Diarrhoea [Not Recovered/Not Resolved]
  - Malaise [Recovering/Resolving]
  - Abdominal pain [Recovering/Resolving]
  - Constipation [Recovered/Resolved]
  - Epistaxis [Recovered/Resolved]
  - Rash [Recovered/Resolved]
  - Hair colour changes [Recovering/Resolving]
  - Decreased appetite [Recovering/Resolving]
  - Paronychia [Recovered/Resolved]
  - Dysgeusia [Recovered/Resolved]
  - Musculoskeletal pain [Recovered/Resolved]
